FAERS Safety Report 4999430-9 (Version None)
Quarter: 2006Q2

REPORT INFORMATION
  Report Type: 
  Country: None (occurrence: None)
  Receive Date: 20060511
  Receipt Date: 20060502
  Transmission Date: 20061013
  Serious: Yes (Hospitalization, Other)
  Sender: FDA-Public Use
  Company Number: PHBS2006AU06472

PATIENT
  Age: 25 Year
  Sex: Male

DRUGS (8)
  1. CYCLOSPORINE [Suspect]
     Indication: RENAL TRANSPLANT
     Route: 065
  2. CYCLOSPORINE [Suspect]
     Dosage: 125 MG, BID
  3. SIMULECT [Suspect]
     Indication: RENAL TRANSPLANT
     Route: 065
  4. PREDNISOLONE [Suspect]
     Indication: RENAL TRANSPLANT
     Route: 065
  5. MYCOPHENOLATE MOFETIL [Suspect]
     Indication: RENAL TRANSPLANT
     Route: 065
  6. SULFAMETHOXAZOLE + TRIMETHOPRIM [Concomitant]
  7. HYDROCORTISONE [Concomitant]
     Indication: RENAL TRANSPLANT
     Route: 042
  8. HYDROCORTISONE [Concomitant]
     Route: 042

REACTIONS (38)
  - ACID FAST BACILLI INFECTION [None]
  - ACTIVATED PARTIAL THROMBOPLASTIN TIME PROLONGED [None]
  - ANAEMIA [None]
  - BACTERIAL DNA TEST POSITIVE [None]
  - BLOOD CREATININE INCREASED [None]
  - BLOOD UREA INCREASED [None]
  - C-REACTIVE PROTEIN INCREASED [None]
  - CARDIAC MURMUR [None]
  - CHEST X-RAY ABNORMAL [None]
  - CHILLS [None]
  - COAGULOPATHY [None]
  - COUGH [None]
  - DISSEMINATED TUBERCULOSIS [None]
  - DRUG LEVEL CHANGED [None]
  - DYSPNOEA [None]
  - HAEMODIALYSIS [None]
  - HAEMOGLOBIN DECREASED [None]
  - HYPOXIA [None]
  - IMMUNE RECONSTITUTION SYNDROME [None]
  - INTERNATIONAL NORMALISED RATIO INCREASED [None]
  - INTUBATION [None]
  - KIDNEY TRANSPLANT REJECTION [None]
  - LEUKOPENIA [None]
  - LUNG INFILTRATION [None]
  - ORCHITIS [None]
  - OXYGEN SATURATION DECREASED [None]
  - PYREXIA [None]
  - RED BLOOD CELL SEDIMENTATION RATE INCREASED [None]
  - RENAL FAILURE ACUTE [None]
  - RENAL IMPAIRMENT [None]
  - RENAL TUBULAR NECROSIS [None]
  - RESPIRATORY DISORDER [None]
  - RESPIRATORY FAILURE [None]
  - TACHYPNOEA [None]
  - TESTICULAR DISORDER [None]
  - TESTICULAR PAIN [None]
  - THROMBOCYTOPENIA [None]
  - VIRAL DNA TEST POSITIVE [None]
